FAERS Safety Report 11889208 (Version 1)
Quarter: 2016Q1

REPORT INFORMATION
  Report Type: Report from Study
  Country: DE (occurrence: DE)
  Receive Date: 20160105
  Receipt Date: 20160105
  Transmission Date: 20160526
  Serious: Yes (Death)
  Sender: FDA-Public Use
  Company Number: DE-ABBVIE-16P-062-1530775-00

PATIENT
  Sex: Female

DRUGS (2)
  1. LEVODOPA COMP [Concomitant]
     Indication: PRODUCT USED FOR UNKNOWN INDICATION
  2. DUODOPA [Suspect]
     Active Substance: CARBIDOPA\LEVODOPA
     Indication: PARKINSON^S DISEASE
     Dosage: MD 5.0 ML, CRD 1.8 ML/HR, ED 1.0 ML
     Route: 050
     Dates: start: 20140317

REACTIONS (1)
  - General physical health deterioration [Fatal]
